FAERS Safety Report 8764150 (Version 2)
Quarter: 2012Q4

REPORT INFORMATION
  Report Type: Report from Study
  Country: CA (occurrence: CA)
  Receive Date: 20120831
  Receipt Date: 20120928
  Transmission Date: 20130627
  Serious: Yes (Hospitalization)
  Sender: FDA-Public Use
  Company Number: CA-ABBOTT-12P-028-0974380-00

PATIENT
  Age: 54 Year
  Sex: Female

DRUGS (1)
  1. HUMIRA 40 MG/0.8 ML PEN [Suspect]
     Indication: CROHN^S DISEASE
     Route: 058
     Dates: start: 20120320, end: 20120320

REACTIONS (13)
  - Gallbladder disorder [Unknown]
  - Cholelithiasis [Unknown]
  - Abdominal pain upper [Unknown]
  - Malaise [Unknown]
  - Abdominal distension [Unknown]
  - Flatulence [Unknown]
  - Weight decreased [Unknown]
  - Alopecia [Unknown]
  - Malaise [Unknown]
  - Incoherent [Unknown]
  - Abdominal pain [Unknown]
  - Migraine [Unknown]
  - Diarrhoea [Unknown]
